FAERS Safety Report 5221008-2 (Version None)
Quarter: 2007Q1

REPORT INFORMATION
  Report Type: 
  Country: None (occurrence: None)
  Receive Date: 20070126
  Receipt Date: 20070116
  Transmission Date: 20070707
  Serious: Yes (Other)
  Sender: FDA-Public Use
  Company Number: US-PURDUE-USA_2007_0026198

PATIENT
  Sex: Female

DRUGS (2)
  1. OXYCONTIN [Suspect]
     Indication: BACK PAIN
     Dates: start: 20020601
  2. OXYCONTIN [Suspect]
     Dates: start: 20040101

REACTIONS (2)
  - CEREBROVASCULAR ACCIDENT [None]
  - DRUG DETOXIFICATION [None]
